FAERS Safety Report 10748939 (Version 1)
Quarter: 2015Q1

REPORT INFORMATION
  Report Type: Spontaneous
  Country: BR (occurrence: BR)
  Receive Date: 20150129
  Receipt Date: 20150129
  Transmission Date: 20150721
  Serious: Yes (Hospitalization)
  Sender: FDA-Public Use
  Company Number: BR-SA-2014SA062690

PATIENT
  Age: 27 Year
  Sex: Female
  Weight: 68 kg

DRUGS (2)
  1. CLEXANE [Suspect]
     Active Substance: ENOXAPARIN SODIUM
     Indication: THROMBOSIS
     Dosage: FORM: SYRINGES
     Route: 058
     Dates: start: 20140510
  2. MAREVAN [Concomitant]
     Active Substance: WARFARIN SODIUM
     Dates: start: 201402, end: 20140510

REACTIONS (7)
  - Umbilical cord abnormality [Unknown]
  - Fluid retention [Unknown]
  - Premature delivery [Unknown]
  - Gestational hypertension [Unknown]
  - Peau d^orange [Recovered/Resolved]
  - Procedural site reaction [Unknown]
  - Exposure during pregnancy [Unknown]

NARRATIVE: CASE EVENT DATE: 20140510
